FAERS Safety Report 14307009 (Version 3)
Quarter: 2018Q1

REPORT INFORMATION
  Report Type: Spontaneous
  Country: AT (occurrence: AT)
  Receive Date: 20171220
  Receipt Date: 20180209
  Transmission Date: 20180509
  Serious: Yes (Hospitalization, Other)
  Sender: FDA-Public Use
  Company Number: AT-BEH-2017085923

PATIENT
  Age: 45 Year
  Sex: Female

DRUGS (7)
  1. PRIVIGEN [Suspect]
     Active Substance: HUMAN IMMUNOGLOBULIN G
     Dosage: 15 G, TOT
     Route: 065
     Dates: start: 20170627
  2. PRIVIGEN [Suspect]
     Active Substance: HUMAN IMMUNOGLOBULIN G
     Dosage: 15 G, TOT
     Route: 065
     Dates: start: 20171212
  3. PRIVIGEN [Suspect]
     Active Substance: HUMAN IMMUNOGLOBULIN G
     Dosage: 15 G, TOT
     Route: 065
     Dates: start: 20170808
  4. PRIVIGEN [Suspect]
     Active Substance: HUMAN IMMUNOGLOBULIN G
     Dosage: 15 G, TOT
     Route: 065
     Dates: start: 20170919
  5. PRIVIGEN [Suspect]
     Active Substance: HUMAN IMMUNOGLOBULIN G
     Indication: MULTIPLE SCLEROSIS
     Dosage: 15 G, EVERY 6 WEEKS
     Route: 065
     Dates: start: 2010, end: 2015
  6. PRIVIGEN [Suspect]
     Active Substance: HUMAN IMMUNOGLOBULIN G
     Dosage: 15 G, TOT
     Route: 065
     Dates: start: 20170516
  7. PRIVIGEN [Suspect]
     Active Substance: HUMAN IMMUNOGLOBULIN G
     Dosage: 15 G, TOT
     Route: 065
     Dates: start: 20171031

REACTIONS (11)
  - Tenderness [Recovering/Resolving]
  - Neoplasm [Recovering/Resolving]
  - Hyperkeratosis [Recovering/Resolving]
  - Dupuytren^s contracture [Recovering/Resolving]
  - Pain in extremity [Not Recovered/Not Resolved]
  - Pain in extremity [Recovering/Resolving]
  - Scar pain [Not Recovered/Not Resolved]
  - Suture removal [Unknown]
  - Fat tissue increased [Recovering/Resolving]
  - Tenderness [Recovering/Resolving]
  - Suture related complication [Recovering/Resolving]

NARRATIVE: CASE EVENT DATE: 201505
